FAERS Safety Report 14871707 (Version 7)
Quarter: 2019Q2

REPORT INFORMATION
  Report Type: Report from Study
  Country: US (occurrence: US)
  Receive Date: 20180509
  Receipt Date: 20190613
  Transmission Date: 20190711
  Serious: Yes (Disabling, Other)
  Sender: FDA-Public Use
  Company Number: US-ACTELION-A-NJ2018-171787

PATIENT
  Sex: Male
  Weight: 91.61 kg

DRUGS (4)
  1. PIPERACILLIN. [Concomitant]
     Active Substance: PIPERACILLIN SODIUM
     Indication: INFECTION PROPHYLAXIS
  2. OPSUMIT [Suspect]
     Active Substance: MACITENTAN
     Indication: PULMONARY ARTERIAL HYPERTENSION
     Dosage: 10 MG, QD
     Route: 048
     Dates: start: 20160527
  3. ADCIRCA [Concomitant]
     Active Substance: TADALAFIL
  4. TAZOBACTAM [Concomitant]
     Active Substance: TAZOBACTAM
     Indication: INFECTION PROPHYLAXIS

REACTIONS (14)
  - Hepatic cancer [Unknown]
  - Hypoacusis [Unknown]
  - Insomnia [Unknown]
  - Liver injury [Unknown]
  - Memory impairment [Unknown]
  - Renal cancer [Unknown]
  - Neoplasm progression [Unknown]
  - Nausea [Unknown]
  - Vomiting [Unknown]
  - Back pain [Unknown]
  - Confusional state [Unknown]
  - Fall [Unknown]
  - Anxiety [Unknown]
  - Dizziness [Unknown]
